FAERS Safety Report 10154059 (Version 2)
Quarter: 2014Q3

REPORT INFORMATION
  Report Type: Spontaneous
  Country: US (occurrence: None)
  Receive Date: 20140502
  Receipt Date: 20140703
  Transmission Date: 20150326
  Serious: Yes (Hospitalization)
  Sender: FDA-Public Use
  Company Number: UTC-047772

PATIENT
  Age: 65 Year
  Sex: Female
  Weight: 38.1 kg

DRUGS (2)
  1. SILDENAFIL (SILDENAFIL) [Concomitant]
     Active Substance: SILDENAFIL
     Dates: start: 20111208
  2. REMODULIN [Suspect]
     Active Substance: TREPROSTINIL
     Indication: PORTAL HYPERTENSION
     Dosage: 21.6 UG/KG (0.015 UG/KG, 1 IN 1 MIN) INTRAVENOUS
     Route: 041
     Dates: start: 20111208

REACTIONS (2)
  - Device related infection [None]
  - Injection site erythema [None]

NARRATIVE: CASE EVENT DATE: 20140416
